FAERS Safety Report 8428570-7 (Version None)
Quarter: 2012Q2

REPORT INFORMATION
  Report Type: 
  Country: None (occurrence: None)
  Receive Date: 20120612
  Receipt Date: 20120607
  Transmission Date: 20120825
  Serious: No
  Sender: FDA-Public Use
  Company Number: US-PFIZER INC-2012138058

PATIENT
  Sex: Female
  Weight: 68.027 kg

DRUGS (1)
  1. RELPAX [Suspect]
     Indication: MIGRAINE
     Dosage: 40 MG, 2X/DAY
     Route: 048
     Dates: start: 20120320, end: 20120320

REACTIONS (4)
  - DRUG INEFFECTIVE [None]
  - RASH [None]
  - PRURITUS [None]
  - SKIN DISORDER [None]
